FAERS Safety Report 12566533 (Version 3)
Quarter: 2016Q3

REPORT INFORMATION
  Report Type: Spontaneous
  Country: US (occurrence: US)
  Receive Date: 20160718
  Receipt Date: 20160902
  Transmission Date: 20161109
  Serious: No
  Sender: FDA-Public Use
  Company Number: US-BAYER-2016-139607

PATIENT
  Age: 57 Year
  Sex: Female
  Weight: 61 kg

DRUGS (1)
  1. CLIMARA PRO [Suspect]
     Active Substance: ESTRADIOL\LEVONORGESTREL
     Indication: MENOPAUSAL DISORDER
     Dosage: UNK
     Route: 062
     Dates: start: 20160717

REACTIONS (4)
  - Application site pain [None]
  - Product physical issue [None]
  - Device damage [Unknown]
  - Application site erythema [None]

NARRATIVE: CASE EVENT DATE: 20160717
